FAERS Safety Report 7782308-5 (Version None)
Quarter: 2011Q3

REPORT INFORMATION
  Report Type: 
  Country: None (occurrence: None)
  Receive Date: 20110927
  Receipt Date: 20110914
  Transmission Date: 20111222
  Serious: Yes (Other)
  Sender: FDA-Public Use
  Company Number: CA-ELI_LILLY_AND_COMPANY-CA201109003921

PATIENT
  Sex: Male

DRUGS (1)
  1. ZYPREXA [Suspect]
     Dosage: UNK

REACTIONS (7)
  - FATIGUE [None]
  - WEIGHT INCREASED [None]
  - DIABETES MELLITUS [None]
  - BLOOD CHOLESTEROL INCREASED [None]
  - THINKING ABNORMAL [None]
  - HYPERSOMNIA [None]
  - BLOOD TRIGLYCERIDES INCREASED [None]
